FAERS Safety Report 8306816-3 (Version None)
Quarter: 2012Q2

REPORT INFORMATION
  Report Type: 
  Country: None (occurrence: None)
  Receive Date: 20120424
  Receipt Date: 20120416
  Transmission Date: 20120825
  Serious: No
  Sender: FDA-Public Use
  Company Number: US-PFIZER INC-2012094438

PATIENT
  Sex: Male
  Weight: 79.365 kg

DRUGS (2)
  1. VIAGRA [Suspect]
     Indication: ERECTILE DYSFUNCTION
     Dosage: 100 MG, AS NEEDED
     Dates: start: 20090101
  2. METHIMAZOLE [Interacting]
     Indication: THYROID DISORDER
     Dosage: 10 MG, DAILY
     Dates: start: 20090101

REACTIONS (2)
  - DRUG EFFECT DELAYED [None]
  - DRUG INTERACTION [None]
